FAERS Safety Report 6709460-4 (Version None)
Quarter: 2010Q2

REPORT INFORMATION
  Report Type: 
  Country: None (occurrence: None)
  Receive Date: 20100428
  Receipt Date: 20090629
  Transmission Date: 20101027
  Serious: No
  Sender: FDA-Public Use
  Company Number: 2009-00409

PATIENT
  Age: 38 Year
  Sex: Male
  Weight: 72.5755 kg

DRUGS (7)
  1. ZICAM COLD REMEDY GEL SWABS [Suspect]
     Dosage: SPORADIC - FOR ONE COLD : FEW MONTHS AGO - (?)
  2. XANAX [Concomitant]
  3. NEXIUM [Concomitant]
  4. FEXOFENADINE [Concomitant]
  5. VICODIN [Concomitant]
  6. SOMA [Concomitant]
  7. MULTI-VITAMIN [Concomitant]

REACTIONS (1)
  - ANOSMIA [None]
